FAERS Safety Report 13010771 (Version 1)
Quarter: 2016Q4

REPORT INFORMATION
  Report Type: Spontaneous
  Country: JP (occurrence: JP)
  Receive Date: 20161208
  Receipt Date: 20161208
  Transmission Date: 20170207
  Serious: Yes (Other)
  Sender: FDA-Public Use
  Company Number: JP-GLAXOSMITHKLINE-JP2016JPN139084

PATIENT
  Age: 70 Year
  Sex: Male
  Weight: 60 kg

DRUGS (10)
  1. SAMITREL [Suspect]
     Active Substance: ATOVAQUONE
     Indication: PNEUMOCYSTIS JIROVECII PNEUMONIA
     Dosage: 750 MG, BID
     Route: 048
     Dates: start: 20160912, end: 20160926
  2. PREDONINE TABLETS [Concomitant]
     Indication: PNEUMOCYSTIS JIROVECII PNEUMONIA
     Dosage: UNK
     Dates: start: 20160909
  3. EDIROL [Concomitant]
     Active Substance: ELDECALCITOL
  4. PARIET [Concomitant]
     Active Substance: RABEPRAZOLE SODIUM
  5. REBAMIPIDE [Concomitant]
     Active Substance: REBAMIPIDE
  6. CRESTOR [Concomitant]
     Active Substance: ROSUVASTATIN CALCIUM
  7. MICARDIS [Suspect]
     Active Substance: TELMISARTAN
     Indication: HYPERTENSION
     Dosage: 20 MG, QD
     Route: 048
     Dates: end: 20160918
  8. MICARDIS [Suspect]
     Active Substance: TELMISARTAN
     Dosage: 20 MG, QD
     Route: 048
     Dates: start: 20160920
  9. PLAVIX [Concomitant]
     Active Substance: CLOPIDOGREL BISULFATE
  10. DAIKENCYUTO [Concomitant]

REACTIONS (2)
  - Hyperkalaemia [Recovered/Resolved]
  - Drug eruption [Recovered/Resolved]

NARRATIVE: CASE EVENT DATE: 20160915
